FAERS Safety Report 6252003-2 (Version None)
Quarter: 2009Q2

REPORT INFORMATION
  Report Type: 
  Country: None (occurrence: None)
  Receive Date: 20090630
  Receipt Date: 20060510
  Transmission Date: 20091009
  Serious: Yes (Hospitalization)
  Sender: FDA-Public Use
  Company Number: US-ROCHE-638474

PATIENT
  Sex: Male

DRUGS (6)
  1. ENFUVIRTIDE [Suspect]
     Route: 065
     Dates: start: 20060216, end: 20071218
  2. PREZISTA [Concomitant]
     Dates: start: 20060216, end: 20080814
  3. TRUVADA [Concomitant]
     Dosage: FREQUENCY: QD.
     Dates: start: 20060216, end: 20080814
  4. NORVIR [Concomitant]
     Dates: end: 20080814
  5. ZITHROMAX [Concomitant]
     Dosage: FREQUENCY: QD.
     Dates: start: 20060216, end: 20080814
  6. BACTRIM DS [Concomitant]
     Dosage: FREQUENCY: QD.
     Dates: start: 20060316, end: 20080814

REACTIONS (6)
  - ARTHRALGIA [None]
  - GOUT [None]
  - IMMUNE RECONSTITUTION SYNDROME [None]
  - PAIN IN EXTREMITY [None]
  - SPONDYLOARTHROPATHY [None]
  - TENDON PAIN [None]
